FAERS Safety Report 12360113 (Version 2)
Quarter: 2016Q2

REPORT INFORMATION
  Report Type: Spontaneous
  Country: DE (occurrence: DE)
  Receive Date: 20160512
  Receipt Date: 20160526
  Transmission Date: 20160815
  Serious: Yes (Life-Threatening, Hospitalization)
  Sender: FDA-Public Use
  Company Number: DE-B.I. PHARMACEUTICALS,INC./RIDGEFIELD-2016-BI-30059DE

PATIENT
  Age: 75 Year
  Sex: Female

DRUGS (4)
  1. BROMAZEPAM [Concomitant]
     Active Substance: BROMAZEPAM
     Indication: SLEEP DISORDER
     Dosage: 6
     Route: 048
     Dates: start: 20160301
  2. DECORTIN [Concomitant]
     Active Substance: PREDNISONE
     Indication: PNEUMONITIS
     Route: 048
  3. GILOTRIF [Suspect]
     Active Substance: AFATINIB
     Indication: LUNG ADENOCARCINOMA
     Dosage: 40 MG
     Route: 048
     Dates: start: 20160401, end: 20160506
  4. LOSARTAN. [Concomitant]
     Active Substance: LOSARTAN
     Indication: HYPERTENSION
     Dosage: 50
     Route: 048
     Dates: start: 20150101

REACTIONS (5)
  - Toxicity to various agents [Unknown]
  - Pneumonitis [Recovered/Resolved]
  - Red blood cell sedimentation rate increased [Unknown]
  - Viral infection [Recovered/Resolved]
  - Dyspnoea [Unknown]

NARRATIVE: CASE EVENT DATE: 20160506
